FAERS Safety Report 17932580 (Version 2)
Quarter: 2020Q3

REPORT INFORMATION
  Report Type: Report from Study
  Country: None (occurrence: US)
  Receive Date: 20200624
  Receipt Date: 20200922
  Transmission Date: 20201103
  Serious: Yes (Hospitalization)
  Sender: FDA-Public Use
  Company Number: US-ABBVIE-20K-163-3451607-00

PATIENT
  Sex: Female

DRUGS (1)
  1. HUMIRA [Suspect]
     Active Substance: ADALIMUMAB
     Indication: PSORIASIS
     Dosage: CITRATE FREE
     Route: 058

REACTIONS (7)
  - Transfusion [Unknown]
  - COVID-19 [Unknown]
  - Blood sodium decreased [Recovering/Resolving]
  - Spinal fracture [Unknown]
  - Blood electrolytes decreased [Recovering/Resolving]
  - Fall [Unknown]
  - Laboratory test abnormal [Unknown]
